FAERS Safety Report 9384534 (Version 2)
Quarter: 2013Q3

REPORT INFORMATION
  Report Type: Spontaneous
  Country: JP (occurrence: JP)
  Receive Date: 20130705
  Receipt Date: 20130806
  Transmission Date: 20140515
  Serious: Yes (Hospitalization, Disabling)
  Sender: FDA-Public Use
  Company Number: JP-JNJFOC-20130700715

PATIENT
  Age: 88 Year
  Sex: Female

DRUGS (8)
  1. XARELTO [Suspect]
     Indication: ATRIAL FIBRILLATION
     Route: 048
     Dates: start: 20130529, end: 20130531
  2. XARELTO [Suspect]
     Indication: CEREBROVASCULAR ACCIDENT PROPHYLAXIS
     Route: 048
     Dates: start: 20130529, end: 20130531
  3. MICAMLO [Concomitant]
     Route: 048
     Dates: start: 20121017
  4. DISOPYRAMIDE PHOSPHATE [Concomitant]
     Route: 048
     Dates: start: 1993
  5. LOPRESSOR [Concomitant]
     Route: 048
     Dates: start: 1993
  6. FAMOTIDINE [Concomitant]
     Route: 048
     Dates: start: 1993
  7. PRAVASTATIN SODIUM [Concomitant]
     Route: 048
     Dates: start: 1993
  8. FRANDOL [Concomitant]
     Route: 062
     Dates: start: 1993

REACTIONS (1)
  - Cerebral infarction [Recovered/Resolved with Sequelae]
